FAERS Safety Report 25779719 (Version 1)
Quarter: 2025Q3

REPORT INFORMATION
  Report Type: Report from Study
  Country: EU (occurrence: EU)
  Receive Date: 20250909
  Receipt Date: 20250909
  Transmission Date: 20251021
  Serious: Yes (Death, Other)
  Sender: MYLAN
  Company Number: EU-GSK-FR2024GSK159238

PATIENT
  Age: 77 Year
  Sex: Female

DRUGS (4)
  1. PACLITAXEL [Suspect]
     Active Substance: PACLITAXEL
     Indication: Endometrial cancer
     Dates: start: 20240612, end: 20250728
  2. CARBOPLATIN [Suspect]
     Active Substance: CARBOPLATIN
     Indication: Endometrial cancer
     Dates: start: 20240612, end: 20250728
  3. DOSTARLIMAB [Suspect]
     Active Substance: DOSTARLIMAB
     Indication: Endometrial cancer
  4. DOSTARLIMAB [Suspect]
     Active Substance: DOSTARLIMAB
     Dates: start: 20250114, end: 20250728

REACTIONS (5)
  - Malignant neoplasm progression [Fatal]
  - Blood thyroid stimulating hormone decreased [Not Recovered/Not Resolved]
  - Chest pain [Unknown]
  - COVID-19 [Unknown]
  - Medical device site infection [Recovered/Resolved]

NARRATIVE: CASE EVENT DATE: 20240924
